FAERS Safety Report 5601896-8 (Version None)
Quarter: 2008Q1

REPORT INFORMATION
  Report Type: 
  Country: None (occurrence: None)
  Receive Date: 20080108
  Receipt Date: 20071226
  Transmission Date: 20080703
  Serious: Yes (Hospitalization, Other)
  Sender: FDA-Public Use
  Company Number: 920#8#2007-00008

PATIENT
  Age: 64 Year
  Sex: Male

DRUGS (2)
  1. NIFEDIPINE [Suspect]
  2. CYCLOSPORINE [Suspect]
     Indication: RENAL TRANSPLANT
     Dates: start: 20010301

REACTIONS (1)
  - GINGIVAL HYPERPLASIA [None]
